FAERS Safety Report 8058786-3 (Version None)
Quarter: 2012Q1

REPORT INFORMATION
  Report Type: 
  Country: None (occurrence: None)
  Receive Date: 20120119
  Receipt Date: 20120119
  Transmission Date: 20120608
  Serious: Yes (Life-Threatening, Hospitalization, Disabling)
  Sender: FDA-Public Use
  Company Number: None

PATIENT
  Sex: Female
  Weight: 40.3701 kg

DRUGS (2)
  1. NUVARING , 120 MG / 0.15 MG PER DAY [Suspect]
     Indication: MENSTRUATION IRREGULAR
  2. NUVARING , 120 MG / 0.15 MG PER DAY [Suspect]
     Indication: MENORRHAGIA

REACTIONS (3)
  - MENORRHAGIA [None]
  - UTERINE LEIOMYOMA [None]
  - DYSMENORRHOEA [None]
